FAERS Safety Report 9343763 (Version 2)
Quarter: 2014Q1

REPORT INFORMATION
  Report Type: Spontaneous
  Country: GB (occurrence: GB)
  Receive Date: 20130612
  Receipt Date: 20140201
  Transmission Date: 20141002
  Serious: Yes (Other)
  Sender: FDA-Public Use
  Company Number: GB-ACCORD-017953

PATIENT
  Age: 74 Year
  Sex: Female

DRUGS (12)
  1. CLOPIDOGREL [Suspect]
     Indication: CEREBROVASCULAR ACCIDENT
  2. ATENOLOL/ATENOLOL HYDROCHLORIDE [Concomitant]
  3. CALCIUM CARBONATE/COLECALCIFEROL [Concomitant]
  4. ZINC [Concomitant]
     Dates: start: 2012
  5. ASPIRIN [Concomitant]
  6. IRON [Concomitant]
     Dates: start: 2012
  7. QUININE [Concomitant]
     Dates: start: 2005
  8. OMEPRAZOLE [Concomitant]
     Dosage: STOPPED BEFORE TAKING CLOPIDOGREL
  9. METFORMIN [Concomitant]
     Dates: start: 2012
  10. LISINOPRIL [Concomitant]
  11. GLICLAZIDE [Concomitant]
     Dates: start: 1998
  12. BENDROFLUMETHIAZIDE [Concomitant]

REACTIONS (2)
  - Vomiting [Unknown]
  - Throat irritation [Unknown]
